FAERS Safety Report 26042535 (Version 2)
Quarter: 2025Q4

REPORT INFORMATION
  Report Type: Report from Study
  Country: US (occurrence: US)
  Receive Date: 20251113
  Receipt Date: 20251119
  Transmission Date: 20260117
  Serious: Yes (Other)
  Sender: MALLINCKRODT
  Company Number: US-MALLINCKRODT-MNK202507019

PATIENT
  Age: 65 Year
  Sex: Female

DRUGS (2)
  1. CORTICOTROPIN [Suspect]
     Active Substance: CORTICOTROPIN
     Indication: Rheumatoid arthritis
     Route: 058
     Dates: start: 20250814, end: 2025
  2. ACETAMINOPHEN [Concomitant]
     Active Substance: ACETAMINOPHEN
     Dosage: UNKNOWN

REACTIONS (10)
  - Knee arthroplasty [Unknown]
  - Pain [Unknown]
  - Restlessness [Unknown]
  - Feeling abnormal [Unknown]
  - Headache [Unknown]
  - Hypertension [Unknown]
  - Vomiting [Unknown]
  - Injection site bruising [Unknown]
  - Fatigue [Unknown]
  - Depression [Unknown]

NARRATIVE: CASE EVENT DATE: 20250101
